FAERS Safety Report 5046113-5 (Version None)
Quarter: 2006Q3

REPORT INFORMATION
  Report Type: 
  Country: None (occurrence: None)
  Receive Date: 20060707
  Receipt Date: 20060707
  Transmission Date: 20061208
  Serious: Yes (Hospitalization)
  Sender: FDA-Public Use
  Company Number: None

PATIENT
  Sex: Male
  Weight: 12.4 kg

DRUGS (4)
  1. CISPLATIN [Suspect]
     Dosage: 43.4 MG
  2. CYCLOPHOSPHAMIDE [Suspect]
     Dosage: 800 MG
  3. ETOPOSIDE [Suspect]
     Dosage: 189 MG  (1,7MG/M2=21MG/DAY)
  4. VINCRISTINE SULFATE [Suspect]
     Dosage: .8 MG GIVEN D1 AND D8

REACTIONS (11)
  - ABDOMINAL PAIN [None]
  - ALANINE AMINOTRANSFERASE INCREASED [None]
  - ASPARTATE AMINOTRANSFERASE INCREASED [None]
  - BILIRUBIN CONJUGATED INCREASED [None]
  - BLOOD BILIRUBIN INCREASED [None]
  - HEPATOMEGALY [None]
  - JAUNDICE [None]
  - NEUTROPENIA [None]
  - PYREXIA [None]
  - VENOOCCLUSIVE LIVER DISEASE [None]
  - WEIGHT INCREASED [None]
